FAERS Safety Report 5008885-5 (Version None)
Quarter: 2006Q2

REPORT INFORMATION
  Report Type: 
  Country: None (occurrence: None)
  Receive Date: 20060404
  Receipt Date: 20051031
  Transmission Date: 20061013
  Serious: No
  Sender: FDA-Public Use
  Company Number: USA0511112590

PATIENT
  Age: 45 Year
  Sex: Female

DRUGS (2)
  1. CYMBALTA [Suspect]
     Indication: POLYNEUROPATHY
     Dosage: 60 MG, DAILY (1/D)
     Dates: start: 20050801, end: 20051031
  2. TOPAMAX [Concomitant]

REACTIONS (4)
  - ANGER [None]
  - ANXIETY [None]
  - INSOMNIA [None]
  - PANIC DISORDER [None]
